FAERS Safety Report 10313188 (Version 1)
Quarter: 2014Q3

REPORT INFORMATION
  Report Type: Spontaneous
  Country: US (occurrence: US)
  Receive Date: 20140718
  Receipt Date: 20140718
  Transmission Date: 20150326
  Serious: Yes (Other)
  Sender: FDA-Public Use
  Company Number: US-BAYER-2014-104963

PATIENT
  Sex: Female

DRUGS (1)
  1. MIRENA [Suspect]
     Active Substance: LEVONORGESTREL
     Dosage: 20 MCG/24HR, CONT
     Route: 015

REACTIONS (6)
  - Dysarthria [None]
  - Headache [None]
  - Cerebrovascular accident [None]
  - Tachycardia [None]
  - Diplopia [None]
  - Vomiting [None]

NARRATIVE: CASE EVENT DATE: 2014
